FAERS Safety Report 4985785-8 (Version None)
Quarter: 2006Q2

REPORT INFORMATION
  Report Type: 
  Country: None (occurrence: None)
  Receive Date: 20060421
  Receipt Date: 20060406
  Transmission Date: 20061013
  Serious: Yes (Other)
  Sender: FDA-Public Use
  Company Number: 109681ISR

PATIENT
  Age: 33 Year
  Sex: Female

DRUGS (1)
  1. GLATIRAMER ACETATE [Suspect]
     Indication: MULTIPLE SCLEROSIS
     Dosage: 20 MILLIGRAM
     Route: 058
     Dates: start: 20041201

REACTIONS (11)
  - CONTUSION [None]
  - DYSPNOEA [None]
  - ERYTHEMA [None]
  - INJECTION SITE ABSCESS [None]
  - INJECTION SITE HAEMATOMA [None]
  - INJECTION SITE NECROSIS [None]
  - INJECTION SITE REACTION [None]
  - PAIN [None]
  - SCAB [None]
  - TACHYCARDIA [None]
  - WOUND [None]
